FAERS Safety Report 13517084 (Version 2)
Quarter: 2017Q2

REPORT INFORMATION
  Report Type: Spontaneous
  Country: CN (occurrence: CN)
  Receive Date: 20170505
  Receipt Date: 20170626
  Transmission Date: 20170830
  Serious: Yes (Life-Threatening, Hospitalization, Other)
  Sender: FDA-Public Use
  Company Number: CN-FERRINGPH-2017FE02022

PATIENT

DRUGS (4)
  1. MENOTROPHIN HP [Suspect]
     Active Substance: MENOTROPINS
     Indication: OVULATION INDUCTION
     Dosage: 75 IU, DAILY, TEN INJECTIONS IN TOTAL
     Route: 065
     Dates: start: 20130505
  2. DECAPEPTYL (ACETATE) [Suspect]
     Active Substance: TRIPTORELIN ACETATE
     Indication: OVULATION INDUCTION
     Dosage: 0.1 MG, UNK
     Route: 058
  3. PROGESTERONE. [Suspect]
     Active Substance: PROGESTERONE
     Indication: OVULATION INDUCTION
     Dosage: 40 MG, DAILY
     Route: 030
  4. DUPHASTON [Suspect]
     Active Substance: DYDROGESTERONE
     Indication: OVULATION INDUCTION
     Dosage: 10 G, 2 TIMES DAILY
     Route: 048

REACTIONS (2)
  - Ovarian hyperstimulation syndrome [Recovered/Resolved]
  - Lymphangitis [Recovered/Resolved]

NARRATIVE: CASE EVENT DATE: 20130509
